FAERS Safety Report 7151110-X (Version None)
Quarter: 2010Q4

REPORT INFORMATION
  Report Type: 
  Country: None (occurrence: None)
  Receive Date: 20101123
  Receipt Date: 20101110
  Transmission Date: 20110411
  Serious: Yes (Hospitalization)
  Sender: FDA-Public Use
  Company Number: B0681652A

PATIENT
  Age: 24 Year
  Sex: Male

DRUGS (7)
  1. AMOXICILLIN TRIHYDRATE + POTASSIUM CLAVULANATE INJECTION (AMOX.TRIHYD+ [Suspect]
     Indication: ANTIBIOTIC PROPHYLAXIS
     Dosage: 1 GRAM(S)/ SINGLE DOSE / INTRAVENOUS
     Route: 042
     Dates: start: 20100301
  2. HYDROXYZINE [Concomitant]
  3. TESTOSTERONE [Concomitant]
  4. MIDAZOLAM HCL [Concomitant]
  5. PROPOFOL [Concomitant]
  6. ALFENTANIL HYDROCHLORIDE [Concomitant]
  7. LIGNOCAINE HYDROCHLORIDE [Concomitant]

REACTIONS (7)
  - ANAPHYLACTIC SHOCK [None]
  - HYPOCAPNIA [None]
  - NO THERAPEUTIC RESPONSE [None]
  - OXYGEN SATURATION DECREASED [None]
  - SKIN TEST POSITIVE [None]
  - SUPRAVENTRICULAR TACHYCARDIA [None]
  - URTICARIA [None]
